FAERS Safety Report 9890191 (Version 1)
Quarter: 2014Q1

REPORT INFORMATION
  Report Type: Spontaneous
  Country: US (occurrence: US)
  Receive Date: 20140212
  Receipt Date: 20140212
  Transmission Date: 20141002
  Serious: No
  Sender: FDA-Public Use
  Company Number: US-BIOGENIDEC-2014BI011752

PATIENT
  Sex: Female

DRUGS (14)
  1. TECFIDERA [Suspect]
     Indication: MULTIPLE SCLEROSIS
     Route: 048
     Dates: start: 20140110
  2. ASPIRIN [Concomitant]
  3. CALCIUM [Concomitant]
  4. CELEXA [Concomitant]
  5. FISH OIL [Concomitant]
  6. IRON [Concomitant]
  7. VITAMIN D3 [Concomitant]
  8. NIACIN [Concomitant]
  9. VELAFAXINE [Concomitant]
  10. VITAMIN B12 [Concomitant]
  11. VITAMIN B-6 [Concomitant]
  12. VITAMIN C [Concomitant]
  13. VITAMIN E [Concomitant]
  14. CLONAZEPAM [Concomitant]

REACTIONS (3)
  - Flatulence [Unknown]
  - Flushing [Unknown]
  - Abdominal discomfort [Unknown]
